FAERS Safety Report 12889159 (Version 1)
Quarter: 2016Q4

REPORT INFORMATION
  Report Type: Spontaneous
  Country: GB (occurrence: GB)
  Receive Date: 20161027
  Receipt Date: 20161027
  Transmission Date: 20170207
  Serious: Yes (Other)
  Sender: FDA-Public Use
  Company Number: PHHY2016GB145680

PATIENT
  Age: 35 Year
  Sex: Female

DRUGS (9)
  1. CHLORPROMAZINE. [Suspect]
     Active Substance: CHLORPROMAZINE
     Indication: AGITATION
  2. COCODAMOL [Suspect]
     Active Substance: ACETAMINOPHEN\CODEINE PHOSPHATE
     Indication: BACK PAIN
     Dosage: 8 TABLETS, (30MG CODEINE/500MG PARACETAMOL TWO TABLETS QDS)
     Route: 065
  3. CITALOPRAM [Suspect]
     Active Substance: CITALOPRAM HYDROBROMIDE
     Indication: DEPRESSION
     Dosage: 20 MG, OM
     Route: 065
  4. TRAMADOL. [Suspect]
     Active Substance: TRAMADOL
     Indication: BACK PAIN
     Route: 065
  5. CITALOPRAM [Suspect]
     Active Substance: CITALOPRAM HYDROBROMIDE
     Indication: AGITATION
  6. CHLORPROMAZINE. [Suspect]
     Active Substance: CHLORPROMAZINE
     Indication: DEPRESSION
     Dosage: 25 MG,TDS
     Route: 065
  7. ZOLPIDEM [Suspect]
     Active Substance: ZOLPIDEM\ZOLPIDEM TARTRATE
     Indication: AGITATION
  8. ZOLPIDEM [Suspect]
     Active Substance: ZOLPIDEM\ZOLPIDEM TARTRATE
     Indication: INSOMNIA
     Dosage: 10 MG, NOCTE
     Route: 065
  9. CODEINE PHOSPHATE [Suspect]
     Active Substance: CODEINE PHOSPHATE
     Indication: BACK PAIN
     Dosage: 180 MG, DAILY
     Route: 065

REACTIONS (4)
  - Maternal exposure during pregnancy [Unknown]
  - Drug dependence [Unknown]
  - Prescription drug used without a prescription [Unknown]
  - Intentional product misuse [Recovered/Resolved]
